FAERS Safety Report 21111852 (Version 1)
Quarter: 2022Q3

REPORT INFORMATION
  Report Type: Spontaneous
  Country: IE (occurrence: IE)
  Receive Date: 20220721
  Receipt Date: 20220721
  Transmission Date: 20221027
  Serious: Yes (Hospitalization)
  Sender: FDA-Public Use
  Company Number: IE-MYLANLABS-2022M1079574

PATIENT
  Age: 44 Year
  Sex: Female

DRUGS (9)
  1. ATORVASTATIN [Suspect]
     Active Substance: ATORVASTATIN
     Indication: Prinzmetal angina
     Dosage: 80 MILLIGRAM, QD
     Route: 065
  2. CLOPIDOGREL [Suspect]
     Active Substance: CLOPIDOGREL BISULFATE
     Indication: Prinzmetal angina
     Dosage: 75 MILLIGRAM, QD
     Route: 065
  3. ISOSORBIDE MONONITRATE [Suspect]
     Active Substance: ISOSORBIDE MONONITRATE
     Indication: Prinzmetal angina
     Dosage: 60 MILLIGRAM, BID
     Route: 065
  4. RANOLAZINE [Suspect]
     Active Substance: RANOLAZINE
     Indication: Prinzmetal angina
     Dosage: 1000 MILLIGRAM, QD
     Route: 065
  5. ASPIRIN [Suspect]
     Active Substance: ASPIRIN
     Indication: Prinzmetal angina
     Dosage: 81 MILLIGRAM, QD
     Route: 065
  6. DILTIAZEM [Suspect]
     Active Substance: DILTIAZEM
     Indication: Prinzmetal angina
     Dosage: 360 MILLIGRAM, QD (EXTENDED RELEASE)
     Route: 065
  7. METOPROLOL TARTRATE [Suspect]
     Active Substance: METOPROLOL TARTRATE
     Indication: Prinzmetal angina
     Dosage: 25 MILLIGRAM, BID
     Route: 065
  8. CYPROHEPTADINE [Concomitant]
     Active Substance: CYPROHEPTADINE
     Indication: Prinzmetal angina
     Dosage: 4 MILLIGRAM, Q8H
     Route: 065
  9. NITROGLYCERIN [Concomitant]
     Active Substance: NITROGLYCERIN
     Indication: Chest pain
     Dosage: UNK, PRN, AS NEEDED
     Route: 060

REACTIONS (1)
  - Drug ineffective [Unknown]
